FAERS Safety Report 11757101 (Version 1)
Quarter: 2015Q4

REPORT INFORMATION
  Report Type: Spontaneous
  Country: US (occurrence: None)
  Receive Date: 20151119
  Receipt Date: 20151119
  Transmission Date: 20160304
  Serious: Yes (Death)
  Sender: FDA-Public Use
  Company Number: None

PATIENT
  Age: 72 Year
  Sex: Male
  Weight: 85.28 kg

DRUGS (4)
  1. RIVAVIRIN [Concomitant]
  2. GLYBURIDE. [Concomitant]
     Active Substance: GLYBURIDE
  3. METFORMIN [Concomitant]
     Active Substance: METFORMIN HYDROCHLORIDE
  4. VIEKIRA PAK [Suspect]
     Active Substance: DASABUVIR\OMBITASVIR\PARITAPREVIR\RITONAVIR
     Indication: HEPATITIS C

REACTIONS (7)
  - Respiratory failure [None]
  - Acute kidney injury [None]
  - Ascites [None]
  - Liver disorder [None]
  - Arteriosclerosis coronary artery [None]
  - Acidosis [None]
  - Hepatic cirrhosis [None]

NARRATIVE: CASE EVENT DATE: 20151018
